FAERS Safety Report 16662406 (Version 2)
Quarter: 2019Q4

REPORT INFORMATION
  Report Type: Spontaneous
  Country: ZA (occurrence: ZA)
  Receive Date: 20190802
  Receipt Date: 20191008
  Transmission Date: 20200122
  Serious: Yes (Other)
  Sender: FDA-Public Use
  Company Number: ZA-SEPTODONT-201905404

PATIENT
  Age: 57 Year
  Sex: Female

DRUGS (2)
  1. PERINDOPRIL ARGININE [Concomitant]
     Active Substance: PERINDOPRIL ARGININE
     Indication: HYPERTENSION
     Dosage: 2,5 MG (UNSPECIFIED ROUTE OF ADMINISTRATION AND THERAPY DURATION).
  2. SEPTANEST [Suspect]
     Active Substance: ARTICAINE HYDROCHLORIDE\EPINEPHRINE BITARTRATE
     Indication: DENTAL LOCAL ANAESTHESIA
     Dosage: UNKNOWN
     Route: 004
     Dates: start: 20190725

REACTIONS (6)
  - Blister [Unknown]
  - Hypoaesthesia [Unknown]
  - Facial paralysis [Unknown]
  - Mouth ulceration [Unknown]
  - Pain [Unknown]
  - Swelling face [Unknown]

NARRATIVE: CASE EVENT DATE: 20190725
